FAERS Safety Report 11778978 (Version 1)
Quarter: 2015Q4

REPORT INFORMATION
  Report Type: Spontaneous
  Country: KR (occurrence: KR)
  Receive Date: 20151125
  Receipt Date: 20151125
  Transmission Date: 20160304
  Serious: Yes (Hospitalization, Other)
  Sender: FDA-Public Use
  Company Number: KR-BAUSCH-BL-2015-027438

PATIENT
  Age: 48 Year
  Sex: Male

DRUGS (24)
  1. ROXITHROMYCIN [Suspect]
     Active Substance: ROXITHROMYCIN
     Indication: MENINGITIS BACTERIAL
     Route: 065
  2. MEROPENEM. [Concomitant]
     Active Substance: MEROPENEM
     Indication: PRODUCT USED FOR UNKNOWN INDICATION
  3. CLINDAMYCIN [Suspect]
     Active Substance: CLINDAMYCIN\CLINDAMYCIN PHOSPHATE
     Indication: PNEUMONIA BACTERIAL
     Route: 042
  4. LEVOFLOXACIN. [Suspect]
     Active Substance: LEVOFLOXACIN
     Indication: MENINGITIS BACTERIAL
     Route: 048
  5. SITAGLIPTIN [Concomitant]
     Active Substance: SITAGLIPTIN
     Indication: DIABETES MELLITUS
  6. CEFTRIAXONE. [Suspect]
     Active Substance: CEFTRIAXONE
     Indication: PNEUMONIA BACTERIAL
     Route: 065
  7. METFORMIN [Concomitant]
     Active Substance: METFORMIN HYDROCHLORIDE
     Indication: DIABETES MELLITUS
  8. TRIMETHOPRIM-SULFAMETHOXAZOLE [Suspect]
     Active Substance: SULFAMETHOXAZOLE\TRIMETHOPRIM
     Indication: MENINGITIS
     Dosage: 5 MG/KG/DAY
     Route: 065
  9. TRIMETHOPRIM-SULFAMETHOXAZOLE [Suspect]
     Active Substance: SULFAMETHOXAZOLE\TRIMETHOPRIM
  10. VANCOMYCIN [Suspect]
     Active Substance: VANCOMYCIN
     Indication: MENINGITIS BACTERIAL
     Dosage: THROUGH AN OMMAYA RESERVOIR
     Route: 042
  11. AMIKACIN [Suspect]
     Active Substance: AMIKACIN
     Indication: MENINGITIS BACTERIAL
     Dosage: 15 MG/KG/DAY
     Route: 037
  12. IMIPENEM [Concomitant]
     Active Substance: IMIPENEM
     Indication: MENINGITIS
  13. VANCOMYCIN [Suspect]
     Active Substance: VANCOMYCIN
     Dosage: INTRATHECAL INJECTION, THROUGH AN OMMAYA RESERVOIR
     Route: 037
  14. RIFAMPIN. [Concomitant]
     Active Substance: RIFAMPIN
     Indication: PRODUCT USED FOR UNKNOWN INDICATION
  15. AZITHROMYCIN [Concomitant]
     Active Substance: AZITHROMYCIN ANHYDROUS
     Indication: HEARING IMPAIRED
  16. PREDNISOLONE. [Concomitant]
     Active Substance: PREDNISOLONE
     Indication: MUSCULOSKELETAL CHEST PAIN
  17. TEICOPLANIN [Concomitant]
     Active Substance: TEICOPLANIN
     Indication: BRAIN ABSCESS
  18. MOXIFLOXACIN. [Suspect]
     Active Substance: MOXIFLOXACIN
     Indication: PNEUMONIA BACTERIAL
     Route: 042
  19. CEFTRIAXONE. [Suspect]
     Active Substance: CEFTRIAXONE
  20. LINEZOLID. [Suspect]
     Active Substance: LINEZOLID
     Indication: MENINGITIS
     Route: 065
  21. LINEZOLID. [Suspect]
     Active Substance: LINEZOLID
  22. RIFAMPICIN [Concomitant]
     Active Substance: RIFAMPIN
     Indication: PRODUCT USED FOR UNKNOWN INDICATION
     Route: 048
  23. DOXYCYCLINE. [Concomitant]
     Active Substance: DOXYCYCLINE
     Indication: PRODUCT USED FOR UNKNOWN INDICATION
     Route: 048
  24. CICLOSPORIN [Concomitant]
     Active Substance: CYCLOSPORINE
     Indication: MUSCULOSKELETAL CHEST PAIN

REACTIONS (8)
  - Adverse drug reaction [Unknown]
  - Disease recurrence [Unknown]
  - Toxicity to various agents [Unknown]
  - Malabsorption from administration site [Unknown]
  - Brain abscess [Recovering/Resolving]
  - Hearing impaired [Unknown]
  - Neutropenia [Recovering/Resolving]
  - Therapeutic response changed [Unknown]
